FAERS Safety Report 4724924-0 (Version None)
Quarter: 2005Q3

REPORT INFORMATION
  Report Type: 
  Country: None (occurrence: None)
  Receive Date: 20050720
  Receipt Date: 20050720
  Transmission Date: 20060218
  Serious: Yes (Hospitalization)
  Sender: FDA-Public Use
  Company Number: None

PATIENT
  Sex: Male

DRUGS (11)
  1. WARFARIN    5 MG [Suspect]
     Indication: INTRACARDIAC THROMBUS
     Dosage: 5MG/7.5MG   S,H/ALL OTHER    ORAL
     Route: 048
  2. WARFARIN    5 MG [Suspect]
     Indication: MYOCARDIAL INFARCTION
     Dosage: 5MG/7.5MG   S,H/ALL OTHER    ORAL
     Route: 048
  3. ASPIRIN [Concomitant]
  4. LISINOPRIL [Concomitant]
  5. IPRATROPIUM BROMIDE [Concomitant]
  6. ALBUTEROL [Concomitant]
  7. POTASSIUM CHLORIDE [Concomitant]
  8. OLANZAPINE [Concomitant]
  9. METOPROLOL [Concomitant]
  10. CLOPIDOGREL BISULFATE [Concomitant]
  11. ATORVASTATIN CALCIUM [Concomitant]

REACTIONS (2)
  - HAEMATOMA [None]
  - INTERNATIONAL NORMALISED RATIO INCREASED [None]
